FAERS Safety Report 4854370-0 (Version None)
Quarter: 2005Q4

REPORT INFORMATION
  Report Type: 
  Country: None (occurrence: None)
  Receive Date: 20051215
  Receipt Date: 20050913
  Transmission Date: 20060501
  Serious: Yes (Other)
  Sender: FDA-Public Use
  Company Number: CA-SP-2005-01805

PATIENT
  Age: 32 Year
  Sex: Female

DRUGS (1)
  1. TUBERSOL (5) [Suspect]
     Indication: TUBERCULIN TEST
     Route: 065
     Dates: start: 20050830

REACTIONS (6)
  - CONVULSION [None]
  - EYE MOVEMENT DISORDER [None]
  - OPISTHOTONUS [None]
  - PALLOR [None]
  - SYNCOPE [None]
  - TONIC CLONIC MOVEMENTS [None]
